FAERS Safety Report 6016457-9 (Version None)
Quarter: 2008Q4

REPORT INFORMATION
  Report Type: 
  Country: None (occurrence: None)
  Receive Date: 20081222
  Receipt Date: 20081218
  Transmission Date: 20090506
  Serious: Yes (Hospitalization, Other)
  Sender: FDA-Public Use
  Company Number: DK-WYE-H05966808

PATIENT
  Age: 47 Year
  Sex: Female

DRUGS (4)
  1. GEMTUZUMAB OZOGAMICIN [Suspect]
     Indication: ACUTE MYELOID LEUKAEMIA
     Dosage: 5.1MG ONCE ON AN UNKNOWN DATE
  2. CYTARABINE [Suspect]
     Indication: ACUTE MYELOID LEUKAEMIA
  3. ETOPOSIDE [Suspect]
     Indication: ACUTE MYELOID LEUKAEMIA
  4. AMSACRINE [Suspect]
     Indication: ACUTE MYELOID LEUKAEMIA

REACTIONS (10)
  - APLASTIC ANAEMIA [None]
  - AZOTAEMIA [None]
  - BLOOD TEST ABNORMAL [None]
  - CLOSTRIDIAL INFECTION [None]
  - DRUG TOXICITY [None]
  - FEBRILE NEUTROPENIA [None]
  - HAEMOGLOBINURIA [None]
  - INTRAVASCULAR HAEMOLYSIS [None]
  - SEPSIS [None]
  - TUBULOINTERSTITIAL NEPHRITIS [None]
